FAERS Safety Report 19919923 (Version 4)
Quarter: 2022Q1

REPORT INFORMATION
  Report Type: Report from Study
  Country: US (occurrence: US)
  Receive Date: 20211005
  Receipt Date: 20220310
  Transmission Date: 20220423
  Serious: Yes (Other)
  Sender: FDA-Public Use
  Company Number: US-ABBVIE-21K-163-4104572-00

PATIENT
  Sex: Female
  Weight: 89.892 kg

DRUGS (5)
  1. CREON [Suspect]
     Active Substance: PANCRELIPASE AMYLASE\PANCRELIPASE LIPASE\PANCRELIPASE PROTEASE
     Indication: Pancreatitis
     Route: 048
  2. CREON [Suspect]
     Active Substance: PANCRELIPASE AMYLASE\PANCRELIPASE LIPASE\PANCRELIPASE PROTEASE
     Dosage: TWO CAPSULES WITH MEALS AND ONE CAPSULE WITH SNACKS
     Route: 048
     Dates: start: 202106, end: 2021
  3. CREON [Suspect]
     Active Substance: PANCRELIPASE AMYLASE\PANCRELIPASE LIPASE\PANCRELIPASE PROTEASE
     Dosage: TWO CAPSULES WITH MEALS AND ONE CAPSULE WITH SNACKS
     Route: 048
     Dates: start: 202110
  4. CREON [Suspect]
     Active Substance: PANCRELIPASE AMYLASE\PANCRELIPASE LIPASE\PANCRELIPASE PROTEASE
     Dosage: TWO CAPSULES WITH MEALS AND ONE CAPSULE WITH SNACKS
     Route: 048
  5. CREON [Suspect]
     Active Substance: PANCRELIPASE AMYLASE\PANCRELIPASE LIPASE\PANCRELIPASE PROTEASE
     Route: 048

REACTIONS (20)
  - Cholecystectomy [Unknown]
  - Cholangitis infective [Recovered/Resolved]
  - Gallbladder disorder [Recovered/Resolved]
  - White blood cell count increased [Recovering/Resolving]
  - Non-Hodgkin^s lymphoma [Not Recovered/Not Resolved]
  - Leukaemia [Unknown]
  - Abdominal pain upper [Recovering/Resolving]
  - Dumping syndrome [Recovering/Resolving]
  - Abdominal distension [Recovering/Resolving]
  - Feeding disorder [Recovered/Resolved]
  - Depression [Recovering/Resolving]
  - Hyperhidrosis [Recovering/Resolving]
  - SARS-CoV-2 test positive [Recovering/Resolving]
  - Nasal disorder [Recovered/Resolved]
  - Chills [Recovered/Resolved]
  - Ear pain [Recovered/Resolved]
  - Pain [Recovered/Resolved]
  - Diarrhoea [Not Recovered/Not Resolved]
  - Dyspepsia [Not Recovered/Not Resolved]
  - Pain [Not Recovered/Not Resolved]

NARRATIVE: CASE EVENT DATE: 20210101
